FAERS Safety Report 7759294-7 (Version None)
Quarter: 2011Q3

REPORT INFORMATION
  Report Type: 
  Country: None (occurrence: None)
  Receive Date: 20110919
  Receipt Date: 20110912
  Transmission Date: 20111222
  Serious: Yes (Hospitalization, Other)
  Sender: FDA-Public Use
  Company Number: PT-PFIZER INC-2011214022

PATIENT
  Age: 8 Year

DRUGS (1)
  1. IBUPROFEN [Suspect]

REACTIONS (3)
  - NECROTISING FASCIITIS [None]
  - TOXIC SHOCK SYNDROME STREPTOCOCCAL [None]
  - DISSEMINATED INTRAVASCULAR COAGULATION [None]
